FAERS Safety Report 23513922 (Version 4)
Quarter: 2024Q1

REPORT INFORMATION
  Report Type: Report from Study
  Country: US (occurrence: US)
  Receive Date: 20240212
  Receipt Date: 20240311
  Transmission Date: 20240409
  Serious: Yes (Hospitalization)
  Sender: FDA-Public Use
  Company Number: US-Eisai-EC-2024-158914

PATIENT
  Age: 86 Year
  Sex: Female

DRUGS (1)
  1. LENVIMA [Suspect]
     Active Substance: LENVATINIB
     Indication: Endometrial cancer
     Route: 048
     Dates: start: 20240122, end: 20240201

REACTIONS (4)
  - Hypertension [Recovering/Resolving]
  - Urinary tract infection [Not Recovered/Not Resolved]
  - Confusional state [Unknown]
  - Wound [Recovered/Resolved]

NARRATIVE: CASE EVENT DATE: 20240201
